FAERS Safety Report 18871670 (Version 3)
Quarter: 2021Q3

REPORT INFORMATION
  Report Type: Report from Study
  Country: CA (occurrence: CA)
  Receive Date: 20210210
  Receipt Date: 20210701
  Transmission Date: 20211014
  Serious: Yes (Other)
  Sender: FDA-Public Use
  Company Number: PHHO2018CA002267

PATIENT
  Age: 60 Year
  Sex: Female
  Weight: 81.6 kg

DRUGS (13)
  1. MAGNESIUM [Concomitant]
     Active Substance: MAGNESIUM
     Indication: HYPOVITAMINOSIS
     Dosage: 750 MG, QD
     Route: 048
     Dates: start: 20110101
  2. BAF312 [Suspect]
     Active Substance: SIPONIMOD
     Dosage: 2 MG, DE
     Route: 048
     Dates: start: 20160304, end: 20210121
  3. SPIRONOLACTONE. [Concomitant]
     Active Substance: SPIRONOLACTONE
     Indication: HYPERTRICHOSIS
     Dosage: 100 MG, QD
     Route: 048
     Dates: start: 20170715
  4. LIORESAL [Concomitant]
     Active Substance: BACLOFEN
     Indication: PAIN
  5. SPIRONOLACTONE. [Concomitant]
     Active Substance: SPIRONOLACTONE
     Indication: ECZEMA
  6. SIPONIMOD [Suspect]
     Active Substance: SIPONIMOD
     Indication: SECONDARY PROGRESSIVE MULTIPLE SCLEROSIS
     Dosage: 2.5 TO 2 MG TITRATION, QD
     Route: 048
     Dates: start: 20131112, end: 20131118
  7. SIPONIMOD [Suspect]
     Active Substance: SIPONIMOD
     Dosage: 2 MG DE
     Route: 048
     Dates: start: 20131119
  8. LIORESAL [Concomitant]
     Active Substance: BACLOFEN
     Indication: MUSCLE SPASTICITY
     Dosage: 10 MG, BID AND 20 MG QHS
     Route: 048
     Dates: start: 20141111
  9. MYRBETRIQ [Concomitant]
     Active Substance: MIRABEGRON
     Indication: NEUROGENIC BLADDER
     Dosage: 50 MG, PRN
     Route: 048
     Dates: start: 20160524
  10. IBUPROFEN. [Concomitant]
     Active Substance: IBUPROFEN
     Indication: MYALGIA
     Dosage: 400 MG, QD
     Route: 048
     Dates: start: 20170101
  11. BAF312 [Suspect]
     Active Substance: SIPONIMOD
     Indication: SECONDARY PROGRESSIVE MULTIPLE SCLEROSIS
     Dosage: 2.5 TO 2 MG TITRATION, QD
     Route: 048
     Dates: start: 20160226, end: 20160303
  12. DIPHENHYDRAMIN HYDROCHLORIDE [Concomitant]
     Active Substance: DIPHENHYDRAMINE HYDROCHLORIDE
     Indication: HYPERSENSITIVITY
     Dosage: 25 MG, QD, PRN
     Route: 048
     Dates: start: 20110101
  13. EFEXOR XR [Concomitant]
     Active Substance: VENLAFAXINE HYDROCHLORIDE
     Indication: DEPRESSION
     Dosage: 150 MG, QD
     Route: 048
     Dates: start: 20140327

REACTIONS (1)
  - Basal cell carcinoma [Recovered/Resolved]

NARRATIVE: CASE EVENT DATE: 20180129
